FAERS Safety Report 19242386 (Version 1)
Quarter: 2021Q2

REPORT INFORMATION
  Report Type: Report from Study
  Country: US (occurrence: US)
  Receive Date: 20210510
  Receipt Date: 20210510
  Transmission Date: 20210717
  Serious: Yes (Death, Life-Threatening, Hospitalization)
  Sender: FDA-Public Use
  Company Number: US-JNJFOC-20210240805

PATIENT
  Age: 73 Year
  Sex: Male
  Weight: 60.8 kg

DRUGS (10)
  1. TYLENOL [Concomitant]
     Active Substance: ACETAMINOPHEN
     Route: 048
  2. DOCUSATE SODIUM. [Concomitant]
     Active Substance: DOCUSATE SODIUM
     Route: 048
  3. VITAMINE C [Concomitant]
     Active Substance: ASCORBIC ACID
     Dosage: TAKE 1 TABLET BY MOUTH THREE TIMES DAILY WITH MEALS AND IRON TABLETS.
     Route: 048
  4. MIRALAX [Concomitant]
     Active Substance: POLYETHYLENE GLYCOL 3350
     Dosage: TAKE 1 PACKET BY MOUTH DAILY PLEASE SUBSTITUE BOTTLE FOR PACKETS ARE UNAVAILABLE.
     Route: 048
  5. ULTRAM [Concomitant]
     Active Substance: TRAMADOL HYDROCHLORIDE
     Dosage: TAKE 1 TABLET BY MOUTH EVERY 6 HOURS AS NEEDED FOR UP TO 3 DAYS, MAXIMUM DAILY DOSE IS 200 MG
     Route: 048
  6. LOTREL [Concomitant]
     Active Substance: AMLODIPINE BESYLATE\BENAZEPRIL HYDROCHLORIDE
     Dosage: 5 TO 20 MG PER CAPSULE
     Route: 065
  7. APALUTAMIDE [Suspect]
     Active Substance: APALUTAMIDE
     Indication: PROSTATE CANCER
     Route: 048
     Dates: start: 20200813
  8. BACTRIM DS [Concomitant]
     Active Substance: SULFAMETHOXAZOLE\TRIMETHOPRIM
     Dosage: 800 ?160 MG PER TABLET, TAKE 1 TABLET BY MOUTH TWO TIMES DAILY FOR 10 DAYS.
     Route: 048
  9. FERROUS SULFATE. [Concomitant]
     Active Substance: FERROUS SULFATE
     Route: 065
  10. LUPRON [Suspect]
     Active Substance: LEUPROLIDE ACETATE
     Indication: PROSTATE CANCER
     Route: 030
     Dates: start: 20200730

REACTIONS (3)
  - Cardiogenic shock [Fatal]
  - Myocardial infarction [Recovered/Resolved with Sequelae]
  - Atrioventricular block complete [Not Recovered/Not Resolved]

NARRATIVE: CASE EVENT DATE: 20210219
